FAERS Safety Report 11220982 (Version 1)
Quarter: 2015Q2

REPORT INFORMATION
  Report Type: Report from Study
  Country: US (occurrence: US)
  Receive Date: 20150626
  Receipt Date: 20150626
  Transmission Date: 20150821
  Serious: Yes (Hospitalization)
  Sender: FDA-Public Use
  Company Number: US-ABBVIE-15K-163-1411262-00

PATIENT
  Age: 36 Year
  Sex: Female

DRUGS (10)
  1. METHOTREXATE [Concomitant]
     Active Substance: METHOTREXATE
     Indication: ARTHRITIS
  2. TOPAMAX [Concomitant]
     Active Substance: TOPIRAMATE
     Indication: BIPOLAR DISORDER
  3. HUMIRA [Suspect]
     Active Substance: ADALIMUMAB
     Indication: CROHN^S DISEASE
     Route: 058
     Dates: start: 2011, end: 2014
  4. LEVOTHYROXINE [Concomitant]
     Active Substance: LEVOTHYROXINE
     Indication: HYPOTHYROIDISM
  5. HUMIRA [Suspect]
     Active Substance: ADALIMUMAB
     Route: 058
     Dates: start: 2015
  6. WELLBUTRIN [Concomitant]
     Active Substance: BUPROPION HYDROCHLORIDE
     Indication: DEPRESSION
  7. BUSPAR [Concomitant]
     Active Substance: BUSPIRONE HYDROCHLORIDE
     Indication: DEPRESSION
  8. XANAX [Concomitant]
     Active Substance: ALPRAZOLAM
     Indication: ANXIETY
  9. HUMIRA [Suspect]
     Active Substance: ADALIMUMAB
     Route: 058
     Dates: start: 201411, end: 2015
  10. PREDNISONE. [Concomitant]
     Active Substance: PREDNISONE
     Indication: ARTHRITIS

REACTIONS (8)
  - Thrombosis [Unknown]
  - Nasopharyngitis [Recovered/Resolved]
  - Pain in extremity [Unknown]
  - Thrombosis [Unknown]
  - Pulmonary thrombosis [Recovered/Resolved]
  - Fatigue [Recovered/Resolved]
  - Pulmonary thrombosis [Recovered/Resolved]
  - Joint range of motion decreased [Recovered/Resolved]

NARRATIVE: CASE EVENT DATE: 201410
